FAERS Safety Report 21521430 (Version 2)
Quarter: 2022Q4

REPORT INFORMATION
  Report Type: Spontaneous
  Country: US (occurrence: US)
  Receive Date: 20221028
  Receipt Date: 20221111
  Transmission Date: 20230112
  Serious: Yes (Other)
  Sender: FDA-Public Use
  Company Number: US-ORGANON-O2210USA002023

PATIENT
  Age: 31 Year
  Sex: Female

DRUGS (1)
  1. NEXPLANON [Suspect]
     Active Substance: ETONOGESTREL
     Dosage: 1 IMPLANT OF 68 MG IN LEFT UPPER ARM
     Route: 059
     Dates: start: 20211108, end: 20221027

REACTIONS (6)
  - Device dislocation [Recovered/Resolved]
  - Haemorrhage [Unknown]
  - Implant site fibrosis [Unknown]
  - Complication of device removal [Recovered/Resolved]
  - Device placement issue [Recovered/Resolved]
  - Complication associated with device [Recovered/Resolved]

NARRATIVE: CASE EVENT DATE: 20211108
